FAERS Safety Report 21365639 (Version 1)
Quarter: 2022Q3

REPORT INFORMATION
  Report Type: Spontaneous
  Country: CL (occurrence: CL)
  Receive Date: 20220922
  Receipt Date: 20220922
  Transmission Date: 20221027
  Serious: Yes (Hospitalization, Other)
  Sender: FDA-Public Use
  Company Number: CL-TEVA-2021-CL-1933503

PATIENT
  Age: 22 Month

DRUGS (6)
  1. PHENOBARBITAL [Suspect]
     Active Substance: PHENOBARBITAL
     Indication: Product used for unknown indication
     Route: 065
  2. PREDNISONE [Suspect]
     Active Substance: PREDNISONE
     Indication: Drug reaction with eosinophilia and systemic symptoms
     Dosage: 1 MG/KG DAILY;
     Route: 065
  3. CYCLOSPORINE [Suspect]
     Active Substance: CYCLOSPORINE
     Indication: Product used for unknown indication
     Dosage: 5 MG/KG DAILY; GIVEN THE LOW BLOOD LEVELS AND LATER DOSE WAS INCREASED TO 10 MG/KG/DAY
     Route: 065
  4. IMMUNE GLOBULIN NOS [Suspect]
     Active Substance: IMMUNE GLOBULIN NOS
     Indication: Drug reaction with eosinophilia and systemic symptoms
     Dosage: 1G/KG
     Route: 042
  5. METHYLPREDNISOLONE [Suspect]
     Active Substance: METHYLPREDNISOLONE
     Indication: Drug reaction with eosinophilia and systemic symptoms
     Dosage: 30 MG/KG
     Route: 065
  6. VITAMIN K [Suspect]
     Active Substance: PHYTONADIONE
     Indication: Drug reaction with eosinophilia and systemic symptoms
     Dosage: 0.5 MG/KG

REACTIONS (3)
  - Drug reaction with eosinophilia and systemic symptoms [Unknown]
  - Drug ineffective [Unknown]
  - Off label use [Unknown]
